FAERS Safety Report 5488886-3 (Version None)
Quarter: 2007Q4

REPORT INFORMATION
  Report Type: 
  Country: None (occurrence: None)
  Receive Date: 20071017
  Receipt Date: 20071009
  Transmission Date: 20080405
  Serious: Yes (Death, Life-Threatening, Hospitalization)
  Sender: FDA-Public Use
  Company Number: DK-SHR-01/04012-CDS

PATIENT
  Age: 37 Year
  Sex: Female

DRUGS (3)
  1. NORITREN (NORTRIPTYLINE HCL) [Concomitant]
     Indication: DEPRESSION
     Dosage: 50 MG X 2
     Dates: start: 20000801
  2. YASMIN [Suspect]
     Indication: ORAL CONTRACEPTION
     Dosage: 1 TAB(S), 21D/28D
     Route: 048
     Dates: start: 20010830, end: 20011111
  3. RISPERDAL [Concomitant]
     Indication: DEPRESSION
     Dosage: 6 MG
     Dates: start: 20000801

REACTIONS (3)
  - COR PULMONALE [None]
  - PAIN IN EXTREMITY [None]
  - PULMONARY EMBOLISM [None]
